FAERS Safety Report 6464096-8 (Version None)
Quarter: 2009Q4

REPORT INFORMATION
  Report Type: 
  Country: None (occurrence: None)
  Receive Date: 20091201
  Receipt Date: 20091119
  Transmission Date: 20100525
  Serious: Yes (Other)
  Sender: FDA-Public Use
  Company Number: GB-AMGEN-US136061

PATIENT
  Sex: Female
  Weight: 60 kg

DRUGS (9)
  1. ENBREL [Suspect]
     Indication: PSORIATIC ARTHROPATHY
     Route: 058
     Dates: start: 20041210
  2. HYDROXYCHLOROQUINE SULFATE [Suspect]
     Indication: RHEUMATOID ARTHRITIS
     Route: 048
  3. DICLOFENAC [Suspect]
     Route: 065
  4. ORAL CONTRACEPTIVE NOS [Suspect]
     Dosage: UNKNOWN
     Route: 065
  5. DF118 [Suspect]
     Dosage: UNKNOWN
     Route: 048
  6. CITALOPRAM HYDROBROMIDE [Suspect]
     Dosage: UNKNOWN
     Route: 065
  7. PLAVIX [Suspect]
     Dosage: UNKNOWN
     Route: 065
  8. METHOTREXATE [Suspect]
     Indication: RHEUMATOID ARTHRITIS
     Dosage: 25MG
     Route: 058
  9. FOLIC ACID [Suspect]
     Dosage: UNKNOWN
     Route: 065

REACTIONS (1)
  - GALACTORRHOEA [None]
